FAERS Safety Report 8955559 (Version 1)
Quarter: 2012Q4

REPORT INFORMATION
  Report Type: Spontaneous
  Country: US (occurrence: None)
  Receive Date: 20121205
  Receipt Date: 20121205
  Transmission Date: 20130627
  Serious: No
  Sender: FDA-Public Use
  Company Number: None

PATIENT
  Age: 74 Year
  Sex: Male

DRUGS (1)
  1. PRADAXA [Suspect]
     Dosage: PRADAXA 75 MG ORAL
     Route: 048

REACTIONS (4)
  - Haematuria [None]
  - Blood creatinine increased [None]
  - Haemoglobin decreased [None]
  - Haematocrit decreased [None]
